FAERS Safety Report 12183283 (Version 5)
Quarter: 2016Q4

REPORT INFORMATION
  Report Type: Spontaneous
  Country: US (occurrence: US)
  Receive Date: 20160316
  Receipt Date: 20161219
  Transmission Date: 20170207
  Serious: Yes (Hospitalization)
  Sender: FDA-Public Use
  Company Number: US-PFIZER INC-2016134744

PATIENT
  Age: 82 Year
  Sex: Female
  Weight: 58 kg

DRUGS (26)
  1. AGGRENOX [Concomitant]
     Active Substance: ASPIRIN\DIPYRIDAMOLE
     Dosage: 1 DF, 2X/DAY [ACETYLSALICYLIC ACID 200MG]/ [DIPYRIDAMOLE 25MG]
     Dates: start: 20161013
  2. SYNTHROID [Concomitant]
     Active Substance: LEVOTHYROXINE SODIUM
     Dosage: 50 UG, DAILY (2 PILLS DAILY ON TUESDAY, THURSDAY AND SATURDAY)
     Dates: start: 20160725
  3. ACIDOPHILUS [Concomitant]
     Active Substance: LACTOBACILLUS ACIDOPHILUS
     Dosage: 1 DF, DAILY
     Route: 048
  4. FISH OIL [Concomitant]
     Active Substance: FISH OIL
     Dosage: 500 MG, DAILY
     Route: 048
  5. LEVOTHYROXINE. [Concomitant]
     Active Substance: LEVOTHYROXINE
     Indication: THYROID DISORDER
     Dosage: 50 UG, ONE PILL ON MONDAY, WEDNESDAY + FRIDAY AND TWO PILLS ON TUESDAY, THURSDAY AND SUNDAY)
  6. LYRICA [Suspect]
     Active Substance: PREGABALIN
     Dosage: 300 MG, DAILY (150 MG CAP, 2 CAPSULES DAILY)
     Route: 048
     Dates: start: 20161013
  7. SYNTHROID [Concomitant]
     Active Substance: LEVOTHYROXINE SODIUM
     Dosage: 50 UG, DAILY (1 TABLET TAKE 1 DAILY ON MONDAY, WEDNESDAY, FRIDAY AND SUNDAY)
     Dates: start: 20160725
  8. MECLIZINE HCL [Concomitant]
     Active Substance: MECLIZINE HYDROCHLORIDE
     Dosage: 12.5 MG, ONCE DAILY, AS NEEDED
     Dates: start: 20151029
  9. LATANOPROST. [Concomitant]
     Active Substance: LATANOPROST
     Dosage: 0.005 %, ONE DROP IN EACH EYE, 1X/DAY (AT BED TIME)
     Route: 047
  10. LYRICA [Suspect]
     Active Substance: PREGABALIN
     Indication: POST HERPETIC NEURALGIA
     Dosage: 150 MG, 2X/DAY
     Route: 048
     Dates: start: 20151013
  11. AGGRENOX [Concomitant]
     Active Substance: ASPIRIN\DIPYRIDAMOLE
     Indication: CAROTID ARTERY OCCLUSION
     Dosage: 2X/DAY (ACETYLSALICYLIC ACID:25MG-DIPYRIDAMOLE:200MG)
     Dates: start: 20160123
  12. MECLIZINE HCL [Concomitant]
     Active Substance: MECLIZINE HYDROCHLORIDE
     Dosage: 12.5 MG, ONCE DAILY, AS NEEDED
     Dates: start: 20160314
  13. ASPIRIN 81 [Concomitant]
     Active Substance: ASPIRIN
     Dosage: 81 MG, DAILY
     Route: 048
  14. PROBIOTIC [Concomitant]
     Active Substance: PROBIOTICS NOS
     Dosage: 100 MG, 1X/DAY
  15. VITAMIN D3 [Concomitant]
     Active Substance: CHOLECALCIFEROL
     Indication: VITAMIN D DEFICIENCY
     Dosage: 2000 IU, DAILY
     Route: 048
     Dates: start: 20131126
  16. LIPITOR [Concomitant]
     Active Substance: ATORVASTATIN CALCIUM
     Indication: ESSENTIAL HYPERTENSION
     Dosage: 80 MG, DAILY
     Route: 048
     Dates: start: 20160725
  17. VITAMIN B12 [Concomitant]
     Active Substance: CYANOCOBALAMIN
     Dosage: 1000 MG, UNK
  18. PROTONIX [Concomitant]
     Active Substance: PANTOPRAZOLE SODIUM
     Dosage: 40 MG, DAILY
     Dates: start: 20160701
  19. CALCIUM CARBONATE. [Concomitant]
     Active Substance: CALCIUM CARBONATE
     Dosage: 600 MG, DAILY
     Route: 048
  20. FISH OIL [Concomitant]
     Active Substance: FISH OIL
     Dosage: 100 MG, 2X/DAY
     Route: 048
  21. PROTONIX [Concomitant]
     Active Substance: PANTOPRAZOLE SODIUM
     Indication: GASTROOESOPHAGEAL REFLUX DISEASE
     Dosage: 40 MG, DAILY
     Dates: start: 20160225
  22. SYNTHROID [Concomitant]
     Active Substance: LEVOTHYROXINE SODIUM
     Dosage: 50 UG TABLET, 1 TABLET 2 PILLS 2X/WEEK AND 1 PILL EVERY OTHER DAY OF THE WEEK
     Dates: start: 20160201
  23. BRIMONIDINE TARTRATE. [Concomitant]
     Active Substance: BRIMONIDINE TARTRATE
     Dosage: DAILY
     Route: 047
  24. VITAMIN B12 [Concomitant]
     Active Substance: CYANOCOBALAMIN
     Dosage: 100 UG, DAILY
     Route: 048
  25. PANTOPRAZOLE [Concomitant]
     Active Substance: PANTOPRAZOLE SODIUM
     Indication: GASTROOESOPHAGEAL REFLUX DISEASE
     Dosage: 40 MG, 1X/DAY
  26. VITAMIN D [Concomitant]
     Active Substance: CHOLECALCIFEROL
     Dosage: 2000 IU, 1X/DAY

REACTIONS (5)
  - Transient ischaemic attack [Unknown]
  - Malaise [Unknown]
  - Hypersomnia [Unknown]
  - Depressed mood [Unknown]
  - Asthenia [Unknown]
